FAERS Safety Report 21349498 (Version 1)
Quarter: 2022Q3

REPORT INFORMATION
  Report Type: Spontaneous
  Country: US (occurrence: US)
  Receive Date: 20220919
  Receipt Date: 20220919
  Transmission Date: 20221027
  Serious: No
  Sender: FDA-Public Use
  Company Number: US-PFIZER INC-202201163981

PATIENT
  Age: 44 Year
  Sex: Female

DRUGS (1)
  1. IBRANCE [Suspect]
     Active Substance: PALBOCICLIB
     Dosage: 1 TABLET ONCE A DAY FOR 21 DAYS ON AND 7 DAYS OFF
     Dates: start: 20220814, end: 20220902

REACTIONS (2)
  - Blood test abnormal [Recovered/Resolved]
  - Breast atrophy [Unknown]

NARRATIVE: CASE EVENT DATE: 20220101
